FAERS Safety Report 9243462 (Version 1)
Quarter: 2013Q2

REPORT INFORMATION
  Report Type: Spontaneous
  Country: US (occurrence: US)
  Receive Date: 20130422
  Receipt Date: 20130422
  Transmission Date: 20140414
  Serious: Yes (Other)
  Sender: FDA-Public Use
  Company Number: US-B.I. PHARMACEUTICALS,INC./RIDGEFIELD-2013-BI-10621BP

PATIENT
  Sex: Male

DRUGS (4)
  1. ATROVENT [Suspect]
     Indication: ASTHMA
     Dosage: 68 MCG
     Route: 055
     Dates: start: 2001, end: 2002
  2. ATROVENT [Suspect]
     Dosage: 68 MCG
     Route: 055
     Dates: start: 2009, end: 2010
  3. ATROVENT [Suspect]
     Dosage: 68 MCG
     Route: 055
     Dates: start: 2010, end: 201303
  4. VITAMIN B [Concomitant]
     Indication: SUPPLEMENTATION THERAPY
     Route: 048

REACTIONS (10)
  - Pulmonary embolism [Recovered/Resolved]
  - Pulmonary embolism [Recovered/Resolved]
  - Deep vein thrombosis [Recovered/Resolved]
  - Deep vein thrombosis [Recovered/Resolved]
  - Dyspnoea [Recovered/Resolved]
  - Lung disorder [Recovered/Resolved]
  - Local swelling [Recovered/Resolved]
  - Rash [Not Recovered/Not Resolved]
  - Pruritus [Not Recovered/Not Resolved]
  - Skin haemorrhage [Recovered/Resolved]
